FAERS Safety Report 12812317 (Version 1)
Quarter: 2016Q4

REPORT INFORMATION
  Report Type: Spontaneous
  Country: US (occurrence: US)
  Receive Date: 20161005
  Receipt Date: 20161005
  Transmission Date: 20170207
  Serious: No
  Sender: FDA-Public Use
  Company Number: US-AMGEN-USASP2016093342

PATIENT
  Age: 62 Year
  Sex: Female

DRUGS (2)
  1. IBUPROFEN. [Concomitant]
     Active Substance: IBUPROFEN
  2. PROLIA [Suspect]
     Active Substance: DENOSUMAB
     Indication: OSTEOPOROSIS POSTMENOPAUSAL
     Dosage: UNK, UNK
     Route: 065
     Dates: start: 20160321

REACTIONS (10)
  - Oropharyngeal pain [Unknown]
  - Swelling face [Unknown]
  - Eye swelling [Unknown]
  - Ear swelling [Unknown]
  - Pruritus [Unknown]
  - Urticaria [Unknown]
  - Infection [Unknown]
  - Mass [Unknown]
  - Ear pruritus [Unknown]
  - Erythema [Unknown]

NARRATIVE: CASE EVENT DATE: 201604
